FAERS Safety Report 24708773 (Version 2)
Quarter: 2025Q3

REPORT INFORMATION
  Report Type: Spontaneous
  Country: BR (occurrence: BR)
  Receive Date: 20241207
  Receipt Date: 20250803
  Transmission Date: 20251020
  Serious: Yes (Life-Threatening, Other)
  Sender: ALEXION PHARMACEUTICALS
  Company Number: BR-AstraZeneca-CH-00761211A

PATIENT
  Sex: Female

DRUGS (2)
  1. DAPAGLIFLOZIN [Suspect]
     Active Substance: DAPAGLIFLOZIN
     Route: 065
  2. Diamicron [Concomitant]
     Route: 065

REACTIONS (5)
  - Blood pressure decreased [Unknown]
  - Uterine cancer [Unknown]
  - Diabetes mellitus [Not Recovered/Not Resolved]
  - Limb mass [Not Recovered/Not Resolved]
  - Drug ineffective [Not Recovered/Not Resolved]
